FAERS Safety Report 6182012-3 (Version None)
Quarter: 2009Q2

REPORT INFORMATION
  Report Type: 
  Country: None (occurrence: None)
  Receive Date: 20090505
  Receipt Date: 20090423
  Transmission Date: 20091009
  Serious: Yes (Hospitalization)
  Sender: FDA-Public Use
  Company Number: AE-2009-026

PATIENT
  Age: 84 Year
  Sex: Female
  Weight: 71 kg

DRUGS (9)
  1. LISINOPRIL AND HYDROCHLOROTHIAZIDE [Suspect]
     Indication: HYPERTENSION
     Dosage: ORAL
     Route: 048
  2. AMLODIPINE [Suspect]
     Indication: HYPERTENSION
     Dosage: 5 MG, BID, ORAL
     Route: 048
  3. ASPIRIN [Concomitant]
  4. LEVETIRACETAM [Concomitant]
  5. PENTAPRAZOL SODIIUM [Concomitant]
  6. SIMVASTATIN [Concomitant]
  7. METOPROLOL SUCCINATE [Suspect]
     Indication: HYPERTENSION
     Dosage: 100MG, BID, ORAL
     Route: 048
  8. MOXONIDINE [Suspect]
     Indication: HYPERTENSION
     Dosage: 0.2 MG, BID, ORAL
     Route: 048
  9. NITRO-SPRAY [Suspect]
     Indication: HYPERTENSION
     Dosage: 0.41MG, BUCCAL
     Route: 002
     Dates: end: 20080612

REACTIONS (1)
  - SYNCOPE [None]
